FAERS Safety Report 6006329-8 (Version None)
Quarter: 2008Q4

REPORT INFORMATION
  Report Type: 
  Country: None (occurrence: None)
  Receive Date: 20081217
  Receipt Date: 20081212
  Transmission Date: 20090506
  Serious: Yes (Hospitalization)
  Sender: FDA-Public Use
  Company Number: B0521315A

PATIENT
  Age: 54 Year
  Sex: Female
  Weight: 59 kg

DRUGS (2)
  1. LAPATINIB [Suspect]
     Indication: BREAST CANCER METASTATIC
     Dates: start: 20080317
  2. CAPECITABINE [Suspect]
     Indication: BREAST CANCER METASTATIC
     Dosage: 3000MG PER DAY
     Dates: start: 20080307, end: 20080410

REACTIONS (6)
  - ANOREXIA [None]
  - ASCITES [None]
  - DEHYDRATION [None]
  - METASTASES TO LIVER [None]
  - METASTASES TO PERITONEUM [None]
  - PLEURAL EFFUSION [None]
